FAERS Safety Report 7798069-X (Version None)
Quarter: 2011Q3

REPORT INFORMATION
  Report Type: 
  Country: None (occurrence: None)
  Receive Date: 20110921
  Receipt Date: 20110909
  Transmission Date: 20111222
  Serious: Yes (Death, Life-Threatening, Hospitalization, Other)
  Sender: FDA-Public Use
  Company Number: THYM-1001109

PATIENT
  Age: 49 Year
  Sex: Female
  Weight: 107.5 kg

DRUGS (25)
  1. ACYCLOVIR [Concomitant]
  2. VITAMIN D [Concomitant]
  3. NILSTAT [Concomitant]
  4. METOCLOPRAMIDE [Concomitant]
  5. FENTANYL [Concomitant]
  6. INSULIN (INSULIN) [Concomitant]
  7. PANTOPRAZOLE [Concomitant]
  8. ONDANSETRON [Concomitant]
  9. COLONYTELY (SODIUM BICARBONATE) [Concomitant]
  10. PENTAMIDINE (PENTAMIDINE) [Concomitant]
  11. POTASSIUM (POTASSIUM CHLORIDE) [Concomitant]
  12. PROMETHAZINE [Concomitant]
  13. VALACYCLOVIR [Concomitant]
  14. PROPOFOL [Concomitant]
  15. CHLORVESCENT (POTASSIUM CHLORIDE) [Concomitant]
  16. THYMOGLOBULIN [Suspect]
     Indication: BONE MARROW TRANSPLANT
     Dosage: 0.5 MG/KG, ,INTRAVENOUS
     Route: 042
     Dates: start: 20090526, end: 20090528
  17. MYCOPHENOLATE MOFETIL [Concomitant]
  18. URSODIOL [Concomitant]
  19. CYCLOSPORINE [Concomitant]
  20. POSACONAZOLE [Concomitant]
  21. FOLIC ACID [Concomitant]
  22. ENOXAPARIN SODIUM [Concomitant]
  23. PHENOXYMETHYLPENICILLIN [Concomitant]
  24. FUROSEMIDE [Concomitant]
  25. CYCLOPHOSPHAMIDE [Concomitant]

REACTIONS (25)
  - APHASIA [None]
  - DIZZINESS [None]
  - EPSTEIN-BARR VIRUS TEST POSITIVE [None]
  - ATRIAL FIBRILLATION [None]
  - RESPIRATORY FAILURE [None]
  - ATAXIA [None]
  - MUSCULAR WEAKNESS [None]
  - PYREXIA [None]
  - LYMPHOCYTOSIS [None]
  - PLATELET COUNT DECREASED [None]
  - STAPHYLOCOCCAL SEPSIS [None]
  - HEADACHE [None]
  - HEAD INJURY [None]
  - STREPTOCOCCUS TEST POSITIVE [None]
  - INFECTION [None]
  - CENTRAL NERVOUS SYSTEM INFLAMMATION [None]
  - TOXICITY TO VARIOUS AGENTS [None]
  - DIARRHOEA [None]
  - FALL [None]
  - ACUTE GRAFT VERSUS HOST DISEASE IN SKIN [None]
  - INFLUENZA A VIRUS TEST POSITIVE [None]
  - PNEUMONIA CYTOMEGALOVIRAL [None]
  - H1N1 INFLUENZA [None]
  - ORGANISING PNEUMONIA [None]
  - PNEUMONIA [None]
